FAERS Safety Report 4409970-9 (Version None)
Quarter: 2004Q3

REPORT INFORMATION
  Report Type: 
  Country: None (occurrence: None)
  Receive Date: 20040728
  Receipt Date: 20040728
  Transmission Date: 20050211
  Serious: Yes (Death)
  Sender: FDA-Public Use
  Company Number: None

PATIENT
  Age: 16 Year
  Sex: Male

DRUGS (1)
  1. EPINEPHRINE [Suspect]
     Dosage: 1 MG/ML VIAL INJECTABLE

REACTIONS (2)
  - CARDIO-RESPIRATORY ARREST [None]
  - MEDICATION ERROR [None]
